FAERS Safety Report 5160052-0 (Version None)
Quarter: 2006Q4

REPORT INFORMATION
  Report Type: 
  Country: None (occurrence: None)
  Receive Date: 20061129
  Receipt Date: 20060817
  Transmission Date: 20070319
  Serious: No
  Sender: FDA-Public Use
  Company Number: US-GLAXOSMITHKLINE-A0617141A

PATIENT
  Sex: Female

DRUGS (6)
  1. BUPROPION HCL [Suspect]
     Indication: DEPRESSION
     Dosage: 100PUFF TWICE PER DAY
     Route: 048
  2. DILACOR XR [Concomitant]
  3. GLUCOPHAGE [Concomitant]
  4. ZOCOR [Concomitant]
  5. LISINOPRIL [Concomitant]
  6. ASPARIN [Concomitant]

REACTIONS (1)
  - INSOMNIA [None]
